FAERS Safety Report 25325306 (Version 4)
Quarter: 2025Q2

REPORT INFORMATION
  Report Type: Spontaneous
  Country: US (occurrence: US)
  Receive Date: 20250516
  Receipt Date: 20250620
  Transmission Date: 20250716
  Serious: Yes (Hospitalization, Disabling, Other)
  Sender: SANOFI AVENTIS
  Company Number: US-SA-2025SA139875

PATIENT
  Age: 74 Year
  Sex: Female

DRUGS (1)
  1. DUPIXENT [Suspect]
     Active Substance: DUPILUMAB
     Indication: Dermatitis atopic
     Dosage: 300 MG, QOW
     Route: 058
     Dates: start: 20250409, end: 20250424

REACTIONS (27)
  - Influenza like illness [Recovered/Resolved]
  - Influenza like illness [Not Recovered/Not Resolved]
  - Malaise [Recovering/Resolving]
  - Tremor [Recovering/Resolving]
  - Asthenia [Recovering/Resolving]
  - Heart rate increased [Recovering/Resolving]
  - Oedema [Recovered/Resolved]
  - Myalgia [Recovering/Resolving]
  - Synovial cyst [Unknown]
  - Pain in extremity [Recovered/Resolved]
  - Condition aggravated [Unknown]
  - Colitis [Unknown]
  - Oedema peripheral [Unknown]
  - Rebound atopic dermatitis [Recovering/Resolving]
  - Fatigue [Unknown]
  - Pruritus [Not Recovered/Not Resolved]
  - Loss of personal independence in daily activities [Recovered/Resolved]
  - Pain [Recovering/Resolving]
  - Weight decreased [Unknown]
  - Dizziness [Unknown]
  - Joint swelling [Recovered/Resolved]
  - Muscular weakness [Unknown]
  - Productive cough [Unknown]
  - Injection site erythema [Unknown]
  - Injection site bruising [Unknown]
  - Arthralgia [Recovered/Resolved]
  - Gait inability [Recovered/Resolved]

NARRATIVE: CASE EVENT DATE: 20250101
